FAERS Safety Report 4680324-3 (Version None)
Quarter: 2005Q2

REPORT INFORMATION
  Report Type: 
  Country: None (occurrence: None)
  Receive Date: 20050601
  Receipt Date: 20050524
  Transmission Date: 20051028
  Serious: Yes (Hospitalization)
  Sender: FDA-Public Use
  Company Number: DE-2005-006330

PATIENT
  Age: 28 Year
  Sex: Female

DRUGS (1)
  1. MIRENA [Suspect]
     Dosage: 20  UG/DAY, CONT, INTRA-UTERINE
     Route: 015
     Dates: start: 20050121, end: 20050329

REACTIONS (9)
  - ABDOMINAL DISCOMFORT [None]
  - ABDOMINAL PAIN [None]
  - BACK PAIN [None]
  - HEADACHE [None]
  - HYPOAESTHESIA [None]
  - MOBILITY DECREASED [None]
  - SOMATISATION DISORDER [None]
  - THROMBOSIS [None]
  - VISUAL DISTURBANCE [None]
